FAERS Safety Report 9448261 (Version 1)
Quarter: 2013Q3

REPORT INFORMATION
  Report Type: Spontaneous
  Country: AR (occurrence: AR)
  Receive Date: 20130808
  Receipt Date: 20130808
  Transmission Date: 20140515
  Serious: Yes (Death)
  Sender: FDA-Public Use
  Company Number: AR-PFIZER INC-2013227701

PATIENT
  Sex: Male

DRUGS (1)
  1. SUTENT [Suspect]
     Indication: METASTATIC RENAL CELL CARCINOMA
     Dosage: 50 MG, 1X/DAY (4/2 SCHEEME)
     Dates: start: 20130612, end: 20130726

REACTIONS (3)
  - Peritonitis [Fatal]
  - Second primary malignancy [Fatal]
  - Gastric cancer [Fatal]
